FAERS Safety Report 17732652 (Version 1)
Quarter: 2020Q2

REPORT INFORMATION
  Report Type: Spontaneous
  Country: IE (occurrence: IE)
  Receive Date: 20200501
  Receipt Date: 20200501
  Transmission Date: 20200714
  Serious: Yes (Life-Threatening)
  Sender: FDA-Public Use
  Company Number: IE-ROCHE-2590280

PATIENT
  Sex: Male
  Weight: 53.5 kg

DRUGS (3)
  1. TECENTRIQ [Suspect]
     Active Substance: ATEZOLIZUMAB
     Indication: SMALL CELL LUNG CANCER
     Route: 041
     Dates: start: 20190909, end: 20200306
  2. CARBOPLATIN. [Concomitant]
     Active Substance: CARBOPLATIN
     Indication: SMALL CELL LUNG CANCER
     Route: 042
     Dates: start: 20190705, end: 20191101
  3. ETOPOSIDE. [Concomitant]
     Active Substance: ETOPOSIDE
     Indication: SMALL CELL LUNG CANCER
     Route: 042
     Dates: start: 20190705, end: 20191101

REACTIONS (2)
  - Disease progression [Unknown]
  - Drug ineffective [Unknown]

NARRATIVE: CASE EVENT DATE: 20200306
